FAERS Safety Report 13812604 (Version 1)
Quarter: 2017Q3

REPORT INFORMATION
  Report Type: Spontaneous
  Country: JP (occurrence: JP)
  Receive Date: 20170728
  Receipt Date: 20170728
  Transmission Date: 20171127
  Serious: Yes (Other)
  Sender: FDA-Public Use
  Company Number: JP-AMGEN-JPNSP2017114991

PATIENT
  Age: 41 Year
  Sex: Female

DRUGS (3)
  1. G-LASTA [Suspect]
     Active Substance: PEGFILGRASTIM
     Indication: NEUTROPHIL COUNT DECREASED
     Dosage: 75 MUG, UNK
     Route: 058
  2. GRAN [Suspect]
     Active Substance: FILGRASTIM
     Indication: NEUTROPHIL COUNT DECREASED
     Dosage: 75 MUG, UNK
     Route: 065
  3. MAGNESIUM SULFATE. [Concomitant]
     Active Substance: MAGNESIUM SULFATE
     Dosage: UNK
     Route: 065

REACTIONS (5)
  - Caesarean section [Unknown]
  - Induction of cervix ripening [Unknown]
  - Uterine contractions during pregnancy [Unknown]
  - Exposure during pregnancy [Unknown]
  - Pyrexia [Recovered/Resolved]
